FAERS Safety Report 6973150-3 (Version None)
Quarter: 2010Q3

REPORT INFORMATION
  Report Type: 
  Country: None (occurrence: None)
  Receive Date: 20100909
  Receipt Date: 20100903
  Transmission Date: 20110219
  Serious: Yes (Other)
  Sender: FDA-Public Use
  Company Number: US-ROCHE-670450

PATIENT
  Sex: Female
  Weight: 63.1 kg

DRUGS (21)
  1. BONIVA [Suspect]
     Indication: OSTEOPOROSIS
     Route: 048
     Dates: start: 20091012
  2. SYNTHROID [Concomitant]
     Route: 048
  3. PROTONIX [Concomitant]
     Route: 048
  4. SOTALOL [Concomitant]
     Route: 048
  5. ASMANEX TWISTHALER [Concomitant]
     Indication: CHRONIC OBSTRUCTIVE PULMONARY DISEASE
     Dosage: DOSE: 60 METERED DOSES 220UG/INHALATION
     Route: 055
  6. CITALOPRAM HYDROBROMIDE [Concomitant]
     Route: 048
  7. TRAZODONE HCL [Concomitant]
     Dosage: DOSE: ONE HALF TO ONE TABLET AT NIGHT
  8. MULTI-VITAMIN [Concomitant]
     Route: 048
  9. MAGNESIUM [Concomitant]
  10. VITAMIN D3 [Concomitant]
     Dosage: DOSE: 2000 UNITS
     Route: 048
  11. COQ-10 [Concomitant]
     Route: 048
  12. GRAPE SEED EXTRACT [Concomitant]
     Dosage: GRAPSEED
  13. RED YEAST [Concomitant]
     Route: 048
  14. ZINC [Concomitant]
     Route: 048
  15. VITAMIN B COMPLEX CAP [Concomitant]
  16. CALCIUM [Concomitant]
  17. FISH OIL [Concomitant]
  18. MOMETASONE FUROATE [Concomitant]
     Indication: CHRONIC OBSTRUCTIVE PULMONARY DISEASE
     Dosage: 2 PUFFS TWICE DAILY
  19. ACIDOPHILUS [Concomitant]
     Route: 048
  20. NORVASC [Concomitant]
     Route: 048
  21. PRILOSEC [Concomitant]

REACTIONS (5)
  - GAIT DISTURBANCE [None]
  - OEDEMA PERIPHERAL [None]
  - PAIN IN EXTREMITY [None]
  - SKIN WARM [None]
  - VENOUS INSUFFICIENCY [None]
